FAERS Safety Report 4697353-6 (Version None)
Quarter: 2005Q2

REPORT INFORMATION
  Report Type: 
  Country: None (occurrence: None)
  Receive Date: 20050621
  Receipt Date: 20050518
  Transmission Date: 20051028
  Serious: Yes (Hospitalization, Disabling)
  Sender: FDA-Public Use
  Company Number: CAR_0027_2005

PATIENT
  Age: 10 Year
  Sex: Female

DRUGS (2)
  1. ACYCLOVIR [Suspect]
     Indication: HERPES SIMPLEX
     Dosage: 200 MG TID
  2. ACYCLOVIR [Suspect]
     Indication: HERPES SIMPLEX
     Dosage: 200 MG TID

REACTIONS (5)
  - BRAIN OEDEMA [None]
  - CENTRAL NERVOUS SYSTEM INFLAMMATION [None]
  - CENTRAL NERVOUS SYSTEM LESION [None]
  - HEMIPARESIS [None]
  - NERVOUS SYSTEM DISORDER [None]
